FAERS Safety Report 11704719 (Version 3)
Quarter: 2015Q4

REPORT INFORMATION
  Report Type: Report from Study
  Country: CA (occurrence: None)
  Receive Date: 20151106
  Receipt Date: 20151124
  Transmission Date: 20160304
  Serious: Yes (Hospitalization, Other)
  Sender: FDA-Public Use
  Company Number: CA-MDT-ADR-2015-02095

PATIENT
  Age: 47 Year
  Sex: Male

DRUGS (2)
  1. BACLOFEN. [Suspect]
     Active Substance: BACLOFEN
  2. GILENYA [Suspect]
     Active Substance: FINGOLIMOD HYDROCHLORIDE
     Indication: RELAPSING-REMITTING MULTIPLE SCLEROSIS
     Dosage: 0.5 MG, QD ORAL

REACTIONS (12)
  - Pain [None]
  - Mobility decreased [None]
  - General physical health deterioration [None]
  - Fatigue [None]
  - Muscular weakness [None]
  - Speech disorder [None]
  - Hemiparesis [None]
  - Multiple sclerosis relapse [None]
  - Central nervous system lesion [None]
  - Nuclear magnetic resonance imaging brain abnormal [None]
  - Headache [None]
  - Therapeutic response decreased [None]
